FAERS Safety Report 20565829 (Version 3)
Quarter: 2022Q1

REPORT INFORMATION
  Report Type: Spontaneous
  Country: RS (occurrence: RS)
  Receive Date: 20220308
  Receipt Date: 20220314
  Transmission Date: 20220423
  Serious: Yes (Life-Threatening, Hospitalization, Other)
  Sender: FDA-Public Use
  Company Number: RS-BoehringerIngelheim-2022-BI-158014

PATIENT
  Sex: Female
  Weight: 60 kg

DRUGS (3)
  1. PRADAXA [Suspect]
     Active Substance: DABIGATRAN ETEXILATE MESYLATE
     Indication: Product used for unknown indication
  2. DAMATON [Concomitant]
     Indication: Product used for unknown indication
     Dosage: 1 TABLET
  3. CLINDAMYCIN [Concomitant]
     Active Substance: CLINDAMYCIN
     Indication: Product used for unknown indication
     Dosage: 6 TABLETS

REACTIONS (1)
  - Suicide attempt [Recovered/Resolved]
